FAERS Safety Report 9735521 (Version 2)
Quarter: 2015Q3

REPORT INFORMATION
  Report Type: Spontaneous
  Country: US (occurrence: US)
  Receive Date: 20131206
  Receipt Date: 20150804
  Transmission Date: 20151125
  Serious: No
  Sender: FDA-Public Use
  Company Number: US-GILEAD-2009-0023477

PATIENT
  Age: 73 Year
  Sex: Male
  Weight: 102.6 kg

DRUGS (13)
  1. HUMALOG [Concomitant]
     Active Substance: INSULIN LISPRO
  2. COLCHICINE. [Concomitant]
     Active Substance: COLCHICINE
  3. ASPIRIN. [Concomitant]
     Active Substance: ASPIRIN
  4. DIOVAN [Concomitant]
     Active Substance: VALSARTAN
  5. DIGOXIN. [Concomitant]
     Active Substance: DIGOXIN
  6. METFORMIN [Concomitant]
     Active Substance: METFORMIN HYDROCHLORIDE
  7. BUMETANIDE. [Concomitant]
     Active Substance: BUMETANIDE
  8. ZOCOR [Concomitant]
     Active Substance: SIMVASTATIN
  9. LETAIRIS [Suspect]
     Active Substance: AMBRISENTAN
     Indication: PULMONARY ARTERIAL HYPERTENSION
     Route: 048
     Dates: start: 20090715
  10. VIAGRA [Concomitant]
     Active Substance: SILDENAFIL CITRATE
  11. BETAPACE [Concomitant]
     Active Substance: SOTALOL HYDROCHLORIDE
  12. NORVASC [Concomitant]
     Active Substance: AMLODIPINE BESYLATE
  13. POTASSIUM CHLORIDE. [Concomitant]
     Active Substance: POTASSIUM CHLORIDE

REACTIONS (2)
  - Hypotension [Unknown]
  - Dyspnoea [Unknown]
